FAERS Safety Report 22588082 (Version 1)
Quarter: 2023Q2

REPORT INFORMATION
  Report Type: Other
  Country: US (occurrence: None)
  Receive Date: 20230612
  Receipt Date: 20230612
  Transmission Date: 20230721
  Serious: Yes (Other)
  Sender: FDA-Public Use
  Company Number: US-ROCHE-3345337

PATIENT
  Age: 72 Year
  Sex: Female
  Weight: 38.59 kg

DRUGS (1)
  1. RITUXAN [Suspect]
     Active Substance: RITUXIMAB
     Indication: Systemic scleroderma
     Dosage: NO
     Route: 041
     Dates: start: 201407, end: 2015

REACTIONS (3)
  - Interstitial lung disease [Unknown]
  - Pulmonary hypertension [Not Recovered/Not Resolved]
  - Off label use [Unknown]

NARRATIVE: CASE EVENT DATE: 20170101
